FAERS Safety Report 9705248 (Version 1)
Quarter: 2013Q4

REPORT INFORMATION
  Report Type: Report from Study
  Country: US (occurrence: US)
  Receive Date: 20131122
  Receipt Date: 20131122
  Transmission Date: 20140711
  Serious: Yes (Hospitalization)
  Sender: FDA-Public Use
  Company Number: US-ACTELION-A-NJ2013-91279

PATIENT
  Age: 71 Year
  Sex: Female

DRUGS (6)
  1. TRACLEER [Suspect]
     Indication: PULMONARY ARTERIAL HYPERTENSION
     Dosage: 125 MG, BID
     Route: 048
     Dates: start: 2010
  2. TRACLEER [Suspect]
     Dosage: 62.5 MG, BID
     Route: 048
     Dates: start: 2010, end: 2010
  3. ATORVASTATIN [Concomitant]
     Dosage: 20 MG, UNK
  4. PAROXETINE [Concomitant]
     Dosage: 20 MG, UNK
  5. LEVOTHYROXINE [Concomitant]
     Dosage: 112 UNK, UNK
  6. OMEPRAZOLE [Concomitant]
     Dosage: 20 MG, UNK

REACTIONS (4)
  - Renal cyst [Recovered/Resolved]
  - Cyst removal [Recovered/Resolved]
  - Local swelling [Recovered/Resolved]
  - Weight decreased [Not Recovered/Not Resolved]
